FAERS Safety Report 8623320 (Version 2)
Quarter: 2012Q4

REPORT INFORMATION
  Report Type: 
  Country: MX (occurrence: MX)
  Receive Date: 20120620
  Receipt Date: 20120828
  Transmission Date: 20130627
  Serious: Yes (Death, Hospitalization, Other)
  Sender: FDA-Public Use
  Company Number: PHHY2012MX052239

PATIENT
  Age: 82 None
  Sex: Male

DRUGS (3)
  1. ACLASTA [Suspect]
     Indication: OSTEOPOROSIS
     Dosage: 5mg/100 ml/year
     Route: 042
     Dates: start: 2008
  2. ACLASTA [Suspect]
     Dosage: 5mg/100 ml/year
     Route: 042
     Dates: start: 2010
  3. ACLASTA [Suspect]
     Dosage: 5mg/100 ml/year
     Route: 042
     Dates: start: 20120616

REACTIONS (7)
  - Pneumonia [Fatal]
  - Lung infection [Fatal]
  - Cough [Fatal]
  - Blood pressure decreased [Fatal]
  - Hip fracture [Unknown]
  - Lower limb fracture [Unknown]
  - Limb discomfort [Unknown]
